FAERS Safety Report 7994583-2 (Version None)
Quarter: 2011Q4

REPORT INFORMATION
  Report Type: 
  Country: None (occurrence: None)
  Receive Date: 20111220
  Receipt Date: 20111216
  Transmission Date: 20120403
  Serious: Yes (Other)
  Sender: FDA-Public Use
  Company Number: US-PFIZER INC-2011306866

PATIENT
  Sex: Female
  Weight: 57.6 kg

DRUGS (11)
  1. PREMARIN [Suspect]
     Indication: OESTROGEN REPLACEMENT THERAPY
     Dosage: UNK
     Route: 048
     Dates: start: 19770101, end: 20110101
  2. ACETYLSALICYLIC ACID [Concomitant]
     Dosage: UNK
  3. PREDNISONE [Concomitant]
     Dosage: UNK
  4. IBUPROFEN (ADVIL) [Concomitant]
     Dosage: UNK
  5. PREMARIN [Suspect]
     Dosage: UNK
     Route: 048
     Dates: start: 20111201
  6. ATENOLOL [Concomitant]
     Dosage: UNK
  7. LEXAPRO [Concomitant]
     Dosage: UNK
  8. GABAPENTIN [Concomitant]
     Dosage: UNK
  9. NEXIUM [Concomitant]
     Dosage: UNK
  10. SYNTHROID [Concomitant]
     Dosage: UNK
     Route: 048
  11. FOLIC ACID [Concomitant]
     Dosage: UNK

REACTIONS (2)
  - HOT FLUSH [None]
  - LARGE INTESTINAL HAEMORRHAGE [None]
